FAERS Safety Report 6418404-4 (Version None)
Quarter: 2009Q4

REPORT INFORMATION
  Report Type: 
  Country: None (occurrence: None)
  Receive Date: 20091021
  Receipt Date: 20090712
  Transmission Date: 20100525
  Serious: No
  Sender: FDA-Public Use
  Company Number: ALL1-2009-01894

PATIENT
  Age: 38 Year
  Sex: Male
  Weight: 81.6 kg

DRUGS (4)
  1. VYVANSE [Suspect]
     Indication: ATTENTION DEFICIT/HYPERACTIVITY DISORDER
     Dosage: 70 MG, 1X/DAY:QD, ORAL
     Route: 048
     Dates: start: 20080101, end: 20090707
  2. RITALIN [Suspect]
     Indication: ATTENTION DEFICIT/HYPERACTIVITY DISORDER
     Dosage: 20 MG, OTHER EVERY 4-6 HOURS UNTIL 1600 OR 1700, ORAL
     Route: 048
     Dates: start: 20080101
  3. VALIUM [Concomitant]
  4. XANAX [Concomitant]

REACTIONS (5)
  - DISTURBANCE IN ATTENTION [None]
  - DISTURBANCE IN SOCIAL BEHAVIOUR [None]
  - LETHARGY [None]
  - MOOD ALTERED [None]
  - NAUSEA [None]
